FAERS Safety Report 25606474 (Version 1)
Quarter: 2025Q3

REPORT INFORMATION
  Report Type: Spontaneous
  Country: US (occurrence: None)
  Receive Date: 20250724
  Receipt Date: 20250724
  Transmission Date: 20251020
  Serious: Yes (Hospitalization)
  Sender: FDA-CTU
  Company Number: None

PATIENT
  Age: 24 Year
  Sex: Female
  Weight: 74.7 kg

DRUGS (1)
  1. TIRZEPATIDE [Suspect]
     Active Substance: TIRZEPATIDE

REACTIONS (6)
  - Abdominal pain upper [None]
  - Abdominal pain [None]
  - Diarrhoea [None]
  - Nausea [None]
  - Chills [None]
  - Suspected product quality issue [None]

NARRATIVE: CASE EVENT DATE: 20250701
